FAERS Safety Report 25496088 (Version 2)
Quarter: 2025Q3

REPORT INFORMATION
  Report Type: Spontaneous
  Country: JP (occurrence: JP)
  Receive Date: 20250630
  Receipt Date: 20250702
  Transmission Date: 20251020
  Serious: Yes (Death, Life-Threatening, Hospitalization, Other)
  Sender: PFIZER
  Company Number: JP-MLMSERVICE-20250619-PI548030-00270-1

PATIENT
  Age: 6 Decade
  Sex: Male

DRUGS (7)
  1. METHYLPREDNISOLONE [Suspect]
     Active Substance: METHYLPREDNISOLONE
     Indication: Gouty tophus
     Dosage: 8 MG, 1X/DAY
     Route: 048
  2. ACETAMINOPHEN [Concomitant]
     Active Substance: ACETAMINOPHEN
  3. COLCHICINE [Concomitant]
     Active Substance: COLCHICINE
  4. DAPRODUSTAT [Concomitant]
     Active Substance: DAPRODUSTAT
  5. SODIUM ZIRCONIUM CYCLOSILICATE [Concomitant]
     Active Substance: SODIUM ZIRCONIUM CYCLOSILICATE
  6. ALFACALCIDOL [Concomitant]
     Active Substance: ALFACALCIDOL
  7. TETRAFERRIC TRICITRATE DECAHYDRATE [Concomitant]
     Active Substance: TETRAFERRIC TRICITRATE DECAHYDRATE

REACTIONS (7)
  - Respiratory failure [Fatal]
  - Pneumonia staphylococcal [Fatal]
  - Pneumonia necrotising [Fatal]
  - Multiple organ dysfunction syndrome [Fatal]
  - Pancytopenia [Fatal]
  - Cardiac arrest [Fatal]
  - Pulseless electrical activity [Fatal]
